FAERS Safety Report 9344138 (Version 1)
Quarter: 2013Q2

REPORT INFORMATION
  Report Type: Spontaneous
  Country: JP (occurrence: JP)
  Receive Date: 20130612
  Receipt Date: 20130612
  Transmission Date: 20140414
  Serious: Yes (Other)
  Sender: FDA-Public Use
  Company Number: JP-UCBSA-088372

PATIENT
  Sex: Male

DRUGS (2)
  1. NEUPRO [Suspect]
     Route: 061
  2. MENESIT [Suspect]
     Dosage: DAILY DOSE: 150 MG
     Route: 048

REACTIONS (1)
  - Neuroleptic malignant syndrome [Unknown]
